FAERS Safety Report 21861023 (Version 1)
Quarter: 2023Q1

REPORT INFORMATION
  Report Type: Spontaneous
  Country: JP (occurrence: JP)
  Receive Date: 20230113
  Receipt Date: 20230113
  Transmission Date: 20230417
  Serious: Yes (Death, Hospitalization, Other)
  Sender: FDA-Public Use
  Company Number: JP-CELGENE-JPN-20220204331

PATIENT
  Age: 70 Year
  Sex: Female
  Weight: 46 kg

DRUGS (4)
  1. ISTODAX [Suspect]
     Active Substance: ROMIDEPSIN
     Indication: Peripheral T-cell lymphoma unspecified
     Route: 041
     Dates: start: 20220201, end: 20220215
  2. PIPERACILLIN SODIUM\TAZOBACTAM SODIUM [Concomitant]
     Active Substance: PIPERACILLIN SODIUM\TAZOBACTAM SODIUM
     Indication: Product used for unknown indication
     Route: 065
     Dates: start: 20220217, end: 20220219
  3. FILGRASTIM [Concomitant]
     Active Substance: FILGRASTIM
     Indication: Product used for unknown indication
     Route: 058
     Dates: start: 20220217, end: 20220219
  4. HISHIPHAGEN [Concomitant]
     Indication: Product used for unknown indication
     Route: 041
     Dates: start: 20220216, end: 20220219

REACTIONS (7)
  - Thrombocytopenia [Unknown]
  - Drug ineffective [Unknown]
  - Tumour lysis syndrome [Fatal]
  - Hepatic function abnormal [Fatal]
  - Pancytopenia [Not Recovered/Not Resolved]
  - Inflammation [Not Recovered/Not Resolved]
  - Malignant neoplasm progression [Fatal]

NARRATIVE: CASE EVENT DATE: 20220208
